FAERS Safety Report 25016601 (Version 1)
Quarter: 2025Q1

REPORT INFORMATION
  Report Type: Spontaneous
  Country: CN (occurrence: CN)
  Receive Date: 20250227
  Receipt Date: 20250227
  Transmission Date: 20250408
  Serious: Yes (Hospitalization)
  Sender: ROCHE
  Company Number: CN-ROCHE-10000216177

PATIENT
  Age: 42 Year
  Sex: Female

DRUGS (11)
  1. HERCEPTIN [Suspect]
     Active Substance: TRASTUZUMAB
     Indication: Breast cancer
     Route: 058
     Dates: start: 20241125, end: 20241202
  2. HERCEPTIN [Suspect]
     Active Substance: TRASTUZUMAB
     Indication: Myelosuppression
  3. HERCEPTIN [Suspect]
     Active Substance: TRASTUZUMAB
     Indication: Liver function test abnormal
  4. HERCEPTIN [Suspect]
     Active Substance: TRASTUZUMAB
     Indication: Hepatitis B
  5. HERCEPTIN [Suspect]
     Active Substance: TRASTUZUMAB
     Indication: Diarrhoea
  6. PERJETA [Suspect]
     Active Substance: PERTUZUMAB
     Indication: Breast cancer
     Route: 042
     Dates: start: 20241125, end: 20241202
  7. HEPARIN SODIUM [Suspect]
     Active Substance: HEPARIN SODIUM
     Indication: Breast cancer
     Dosage: 10.000 U
     Route: 042
     Dates: start: 20241125, end: 20241202
  8. HEPARIN SODIUM [Suspect]
     Active Substance: HEPARIN SODIUM
     Indication: Myelosuppression
  9. HEPARIN SODIUM [Suspect]
     Active Substance: HEPARIN SODIUM
     Indication: Liver function test abnormal
  10. HEPARIN SODIUM [Suspect]
     Active Substance: HEPARIN SODIUM
     Indication: Hepatitis B
  11. HEPARIN SODIUM [Suspect]
     Active Substance: HEPARIN SODIUM
     Indication: Diarrhoea

REACTIONS (1)
  - Myelosuppression [Unknown]

NARRATIVE: CASE EVENT DATE: 20241207
